FAERS Safety Report 23274237 (Version 2)
Quarter: 2025Q4

REPORT INFORMATION
  Report Type: Report from Study
  Country: EU (occurrence: EU)
  Receive Date: 20231208
  Receipt Date: 20251103
  Transmission Date: 20260118
  Serious: Yes (Other)
  Sender: Haleon PLC
  Company Number: EU-MINISAL02-958258

PATIENT
  Age: 17 Year
  Sex: Female

DRUGS (1)
  1. VOLTAREN [Suspect]
     Active Substance: DICLOFENAC SODIUM
     Indication: Pain management
     Dosage: ADMINISTRATION ROUTE: CUTANEOUS
     Route: 003
     Dates: start: 20231012, end: 20231015

REACTIONS (2)
  - Dermatitis bullous [Recovering/Resolving]
  - Burning sensation [Recovering/Resolving]

NARRATIVE: CASE EVENT DATE: 20231012
